FAERS Safety Report 4409490-1 (Version None)
Quarter: 2004Q3

REPORT INFORMATION
  Report Type: 
  Country: None (occurrence: None)
  Receive Date: 20040727
  Receipt Date: 20040727
  Transmission Date: 20050211
  Serious: Yes (Hospitalization)
  Sender: FDA-Public Use
  Company Number: None

PATIENT
  Age: 77 Year
  Sex: Female
  Weight: 90.7 kg

DRUGS (13)
  1. DIGOXIN [Suspect]
     Indication: ATRIAL FIBRILLATION
     Dosage: 0.25 Q DAILY
  2. ATENOLOL [Concomitant]
  3. NITROGLYCERIN [Concomitant]
  4. INDOCIN [Concomitant]
  5. KCL TAB [Concomitant]
  6. LASIX [Concomitant]
  7. COLACE [Concomitant]
  8. ZOLOFT [Concomitant]
  9. FLEXERIL [Concomitant]
  10. HYDRALAZINE [Concomitant]
  11. HYDROCODONE BITARTRATE AND ACETAMINOPHEN [Concomitant]
  12. DURAGESIC [Concomitant]
  13. DULCOLAX [Concomitant]

REACTIONS (5)
  - ASTHENIA [None]
  - BRADYCARDIA [None]
  - HYPOTENSION [None]
  - MENTAL STATUS CHANGES [None]
  - THERAPEUTIC AGENT TOXICITY [None]
